FAERS Safety Report 9508640 (Version 1)
Quarter: 2013Q3

REPORT INFORMATION
  Report Type: Spontaneous
  Country: DE (occurrence: DE)
  Receive Date: 20130909
  Receipt Date: 20130909
  Transmission Date: 20140515
  Serious: Yes (Hospitalization)
  Sender: FDA-Public Use
  Company Number: DE-PFIZER INC-2013254439

PATIENT
  Age: 54 Year
  Sex: Female

DRUGS (5)
  1. OXALIPLATIN [Suspect]
     Indication: COLON CANCER METASTATIC
     Dosage: UNK, 4 CYCLES
     Dates: start: 201202, end: 201203
  2. OXALIPLATIN [Suspect]
     Indication: DISEASE PROGRESSION
     Dosage: 5TH CYCLE
     Dates: start: 20120326
  3. FLUOROURACIL [Concomitant]
     Dosage: UNK
     Dates: start: 201202, end: 201203
  4. FOLINIC ACID [Concomitant]
     Indication: COLON CANCER METASTATIC
     Dosage: UNK
     Dates: start: 201202, end: 201203
  5. FOLINIC ACID [Concomitant]
     Indication: DISEASE PROGRESSION

REACTIONS (3)
  - Multi-organ failure [Recovered/Resolved]
  - Autoimmune haemolytic anaemia [Recovered/Resolved]
  - Disseminated intravascular coagulation [Recovered/Resolved]
